FAERS Safety Report 8238722-7 (Version None)
Quarter: 2012Q1

REPORT INFORMATION
  Report Type: 
  Country: None (occurrence: None)
  Receive Date: 20120327
  Receipt Date: 20120321
  Transmission Date: 20120608
  Serious: Yes (Hospitalization, Other)
  Sender: FDA-Public Use
  Company Number: CA-ABBOTT-12P-028-0888390-00

PATIENT
  Sex: Male

DRUGS (5)
  1. HUMIRA [Suspect]
     Indication: COLITIS ULCERATIVE
     Route: 058
     Dates: start: 20111130, end: 20111228
  2. REMICADE [Suspect]
     Indication: COLITIS ULCERATIVE
     Route: 058
     Dates: start: 20110501, end: 20111001
  3. PURINETHOL [Concomitant]
     Indication: CROHN'S DISEASE
     Route: 048
     Dates: start: 20110501
  4. CRESTOR [Concomitant]
     Indication: BLOOD CHOLESTEROL INCREASED
     Dates: start: 20070101
  5. MESALAMINE [Concomitant]
     Indication: CROHN'S DISEASE
     Route: 048
     Dates: start: 20050101

REACTIONS (5)
  - WEIGHT DECREASED [None]
  - INTESTINAL RESECTION [None]
  - DYSPNOEA [None]
  - PULMONARY ARTERY ANEURYSM [None]
  - PHLEBITIS [None]
